FAERS Safety Report 25007296 (Version 1)
Quarter: 2025Q1

REPORT INFORMATION
  Report Type: Spontaneous
  Country: CN (occurrence: CN)
  Receive Date: 20250225
  Receipt Date: 20250225
  Transmission Date: 20250409
  Serious: Yes (Other)
  Sender: AFAXYS
  Company Number: CN-AFAXYS PHARMA, LLC-2025AFX00002

PATIENT
  Age: 72 Year
  Sex: Male

DRUGS (2)
  1. LIDOCAINE [Suspect]
     Active Substance: LIDOCAINE
     Indication: Local anaesthesia
     Dates: start: 20240505, end: 20240505
  2. TETANUS ANTITOXIN [Concomitant]
     Active Substance: TETANUS ANTITOXIN
     Dates: start: 20240505

REACTIONS (1)
  - Anaphylactic shock [Recovered/Resolved]

NARRATIVE: CASE EVENT DATE: 20240505
